FAERS Safety Report 23206369 (Version 2)
Quarter: 2023Q4

REPORT INFORMATION
  Report Type: Report from Study
  Country: DE (occurrence: DE)
  Receive Date: 20231120
  Receipt Date: 20231122
  Transmission Date: 20240110
  Serious: Yes (Hospitalization, Other)
  Sender: FDA-Public Use
  Company Number: DE-002147023-NVSC2023DE243346

PATIENT
  Sex: Female
  Weight: 155 kg

DRUGS (1)
  1. COSENTYX [Suspect]
     Active Substance: SECUKINUMAB
     Indication: Psoriasis
     Dosage: UNK (300)
     Route: 065
     Dates: start: 20201124

REACTIONS (8)
  - Flank pain [Recovered/Resolved]
  - Vomiting [Recovered/Resolved]
  - Nausea [Recovered/Resolved]
  - Intervertebral disc disorder [Recovered/Resolved]
  - Panniculitis [Unknown]
  - Uterine leiomyoma [Unknown]
  - C-reactive protein increased [Unknown]
  - Hepatic steatosis [Unknown]

NARRATIVE: CASE EVENT DATE: 20221009
